FAERS Safety Report 22771184 (Version 4)
Quarter: 2024Q2

REPORT INFORMATION
  Report Type: Spontaneous
  Country: US (occurrence: US)
  Receive Date: 20230801
  Receipt Date: 20240410
  Transmission Date: 20240716
  Serious: Yes (Other)
  Sender: FDA-Public Use
  Company Number: US-BRISTOL-MYERS SQUIBB COMPANY-2023-107601

PATIENT
  Age: 64 Year
  Sex: Male

DRUGS (1)
  1. REVLIMID [Suspect]
     Active Substance: LENALIDOMIDE
     Indication: Plasma cell myeloma
     Route: 048

REACTIONS (8)
  - Treatment noncompliance [Unknown]
  - Diarrhoea [Unknown]
  - Constipation [Unknown]
  - Cancer pain [Unknown]
  - Platelet count decreased [Unknown]
  - Renal disorder [Unknown]
  - Dyspnoea exertional [Unknown]
  - Pericardial effusion [Unknown]
